FAERS Safety Report 11459123 (Version 8)
Quarter: 2017Q4

REPORT INFORMATION
  Report Type: Spontaneous
  Country: US (occurrence: US)
  Receive Date: 20150904
  Receipt Date: 20171024
  Transmission Date: 20180320
  Serious: Yes (Hospitalization, Other)
  Sender: FDA-Public Use
  Company Number: US-PFIZER INC-2015291815

PATIENT
  Age: 70 Year
  Sex: Male

DRUGS (4)
  1. XELJANZ [Suspect]
     Active Substance: TOFACITINIB CITRATE
     Dosage: 5 MG, TWICE A DAY
     Dates: start: 20150715, end: 201611
  2. XELJANZ [Suspect]
     Active Substance: TOFACITINIB CITRATE
     Dosage: UNK
     Dates: start: 201612
  3. XELJANZ [Suspect]
     Active Substance: TOFACITINIB CITRATE
     Dosage: 5 MG, TWICE A DAY
     Route: 048
     Dates: start: 20150701
  4. XELJANZ [Suspect]
     Active Substance: TOFACITINIB CITRATE
     Dosage: 5 MG, UNK
     Dates: start: 201507

REACTIONS (16)
  - Hypertension [Unknown]
  - Sinusitis [Unknown]
  - Sinus congestion [Unknown]
  - Respiratory tract congestion [Unknown]
  - Nausea [Unknown]
  - Carpal tunnel syndrome [Unknown]
  - Renal disorder [Unknown]
  - Drug dose omission [Unknown]
  - Cystitis [Unknown]
  - Urinary retention [Unknown]
  - Asthenia [Unknown]
  - Epistaxis [Unknown]
  - Abdominal pain [Unknown]
  - Skin infection [Unknown]
  - Condition aggravated [Unknown]
  - Diarrhoea [Unknown]
